FAERS Safety Report 12946980 (Version 1)
Quarter: 2016Q4

REPORT INFORMATION
  Report Type: Spontaneous
  Country: US (occurrence: US)
  Receive Date: 20161116
  Receipt Date: 20161116
  Transmission Date: 20170207
  Serious: No
  Sender: FDA-Public Use
  Company Number: US-PFIZER INC-2016528098

PATIENT
  Age: 73 Year
  Sex: Female
  Weight: 86 kg

DRUGS (3)
  1. LIPITOR [Suspect]
     Active Substance: ATORVASTATIN CALCIUM
     Indication: BLOOD CHOLESTEROL
     Dosage: 80 MG, 1X/DAY
     Route: 048
     Dates: start: 201611
  2. TOPAMAX [Concomitant]
     Active Substance: TOPIRAMATE
     Indication: FIBROMUSCULAR DYSPLASIA
     Dosage: 400 MG, 2X/DAY
     Route: 048
  3. ZOLOFT [Concomitant]
     Active Substance: SERTRALINE HYDROCHLORIDE
     Indication: DEPRESSION
     Dosage: 400 MG, DAILY
     Route: 048

REACTIONS (1)
  - Diarrhoea [Recovered/Resolved]
